FAERS Safety Report 9621345 (Version 1)
Quarter: 2013Q4

REPORT INFORMATION
  Report Type: Spontaneous
  Country: US (occurrence: None)
  Receive Date: 20131011
  Receipt Date: 20131011
  Transmission Date: 20140711
  Serious: Yes (Hospitalization)
  Sender: FDA-Public Use
  Company Number: None

PATIENT
  Age: 73 Year
  Sex: Female
  Weight: 46.9 kg

DRUGS (3)
  1. METHOTREXATE [Suspect]
  2. PROCARBAZINE [Suspect]
  3. RITUXIMAB (MOAB C2B8 ANTI CD20, CHIMERIC) [Suspect]

REACTIONS (12)
  - Presyncope [None]
  - Asthenia [None]
  - Oropharyngeal pain [None]
  - Dyspnoea [None]
  - Productive cough [None]
  - Fall [None]
  - Head injury [None]
  - Subdural haematoma [None]
  - Convulsion [None]
  - Haemoglobin decreased [None]
  - Haematocrit decreased [None]
  - International normalised ratio increased [None]
